FAERS Safety Report 25694445 (Version 1)
Quarter: 2025Q3

REPORT INFORMATION
  Report Type: Spontaneous
  Country: GB (occurrence: GB)
  Receive Date: 20250818
  Receipt Date: 20250818
  Transmission Date: 20251020
  Serious: Yes (Other)
  Sender: ELI LILLY AND COMPANY
  Company Number: None

PATIENT
  Age: 34 Year
  Sex: Female
  Weight: 78 kg

DRUGS (2)
  1. MOUNJARO [Suspect]
     Active Substance: TIRZEPATIDE
     Indication: Weight control
     Dosage: 10 MG, WEEKLY (1/W)
     Route: 065
  2. DESOGESTREL [Concomitant]
     Active Substance: DESOGESTREL
     Indication: Oral contraception

REACTIONS (4)
  - Herpes zoster [Recovering/Resolving]
  - Pruritus [Unknown]
  - Nervous system disorder [Unknown]
  - Erythema [Unknown]
